FAERS Safety Report 6346866-X (Version None)
Quarter: 2009Q3

REPORT INFORMATION
  Report Type: 
  Country: None (occurrence: None)
  Receive Date: 20090908
  Receipt Date: 20090908
  Transmission Date: 20100115
  Serious: Yes (Other)
  Sender: FDA-Public Use
  Company Number: None

PATIENT
  Age: 59 Year
  Sex: Male

DRUGS (2)
  1. KADIAN [Suspect]
     Indication: PAIN
     Dosage: ONE TAB DAILY PO
     Route: 048
  2. ER MORPHINE SULFATE 15 [Suspect]
     Dosage: THREE TABS TWICE DAILY PO
     Route: 048

REACTIONS (2)
  - CIRCUMSTANCE OR INFORMATION CAPABLE OF LEADING TO MEDICATION ERROR [None]
  - PRODUCT LABEL ISSUE [None]
